FAERS Safety Report 20390114 (Version 1)
Quarter: 2022Q1

REPORT INFORMATION
  Report Type: Spontaneous
  Country: US (occurrence: US)
  Receive Date: 20220128
  Receipt Date: 20220128
  Transmission Date: 20220424
  Serious: No
  Sender: FDA-Public Use
  Company Number: US-ALLERGAN-2125061US

PATIENT

DRUGS (3)
  1. BOTOX [Suspect]
     Active Substance: ONABOTULINUMTOXINA
     Indication: Skin wrinkling
     Dosage: 20 UNITS, SINGLE
     Dates: start: 20210514, end: 20210514
  2. HYALURONIC ACID [Suspect]
     Active Substance: HYALURONIC ACID
     Indication: Skin wrinkling
     Dosage: UNK
     Dates: start: 20210514, end: 20210514
  3. HYALURONIC ACID [Suspect]
     Active Substance: HYALURONIC ACID
     Dosage: UNK
     Dates: start: 20210224, end: 20210224

REACTIONS (1)
  - Injection site swelling [Unknown]
